FAERS Safety Report 9814695 (Version 1)
Quarter: 2014Q1

REPORT INFORMATION
  Report Type: Spontaneous
  Country: FR (occurrence: FR)
  Receive Date: 20140113
  Receipt Date: 20140113
  Transmission Date: 20141002
  Serious: Yes (Hospitalization)
  Sender: FDA-Public Use
  Company Number: PHHY2014FR002022

PATIENT
  Age: 26 Year
  Sex: Female

DRUGS (2)
  1. PARACETAMOL SANDOZ [Suspect]
     Indication: POISONING DELIBERATE
     Dosage: 8 G, UNK
     Route: 048
     Dates: start: 20090701, end: 20090701
  2. PRONTALGINE [Suspect]
     Indication: POISONING DELIBERATE
     Route: 048
     Dates: start: 20090701, end: 20090701

REACTIONS (1)
  - Toxicity to various agents [Not Recovered/Not Resolved]
